FAERS Safety Report 8009253-4 (Version None)
Quarter: 2011Q4

REPORT INFORMATION
  Report Type: 
  Country: None (occurrence: None)
  Receive Date: 20111227
  Receipt Date: 20111220
  Transmission Date: 20120403
  Serious: Yes (Other)
  Sender: FDA-Public Use
  Company Number: PHHY2011PE097712

PATIENT
  Age: 43 Year
  Sex: Male

DRUGS (4)
  1. PEGINTERFERON ALFA-2A [Suspect]
     Indication: HEPATITIS C
     Dosage: 180 UG/WEEK
     Route: 058
  2. PEGINTERFERON ALFA-2A [Suspect]
     Dosage: 135 UG/WEEK
     Route: 058
  3. RIBAVIRIN [Suspect]
     Indication: HEPATITIS C
     Dosage: 1200 MG/DAY
     Route: 048
  4. RIBAVIRIN [Suspect]
     Dosage: 1000 MG/DAY
     Route: 048

REACTIONS (11)
  - THYROXINE FREE INCREASED [None]
  - ANAEMIA [None]
  - LEUKOPENIA [None]
  - MYALGIA [None]
  - BLOOD THYROID STIMULATING HORMONE DECREASED [None]
  - DIARRHOEA [None]
  - HEADACHE [None]
  - THROMBOCYTOPENIA [None]
  - AUTOIMMUNE THYROIDITIS [None]
  - CHILLS [None]
  - BASEDOW'S DISEASE [None]
